FAERS Safety Report 17274798 (Version 2)
Quarter: 2020Q1

REPORT INFORMATION
  Report Type: Report from Study
  Country: CA (occurrence: CA)
  Receive Date: 20200115
  Receipt Date: 20200122
  Transmission Date: 20200409
  Serious: Yes (Other)
  Sender: FDA-Public Use
  Company Number: CA-BEH-2020111711

PATIENT
  Age: 8 Year
  Sex: Female
  Weight: 24 kg

DRUGS (2)
  1. HAEMATE P [Suspect]
     Active Substance: ANTIHEMOPHILIC FACTOR HUMAN
     Indication: VON WILLEBRAND^S DISEASE
     Dosage: 2000 RCOF TWICE A WEEK
     Route: 042
  2. HAEMATE P [Suspect]
     Active Substance: ANTIHEMOPHILIC FACTOR HUMAN
     Indication: VON WILLEBRAND^S DISEASE
     Dosage: 2000 RCOF TWICE A WEEK
     Route: 042

REACTIONS (8)
  - Haemophilic pseudotumour [Recovered/Resolved with Sequelae]
  - Osteorrhagia [Not Recovered/Not Resolved]
  - Poor venous access [Unknown]
  - Mouth haemorrhage [Recovering/Resolving]
  - Treatment noncompliance [Unknown]
  - Therapy cessation [Unknown]
  - Agitation [Unknown]
  - No adverse event [Unknown]

NARRATIVE: CASE EVENT DATE: 2019
